FAERS Safety Report 4936619-9 (Version None)
Quarter: 2006Q1

REPORT INFORMATION
  Report Type: 
  Country: None (occurrence: None)
  Receive Date: 20060127
  Receipt Date: 20051202
  Transmission Date: 20060701
  Serious: Yes (Hospitalization)
  Sender: FDA-Public Use
  Company Number: 2005164454

PATIENT
  Age: 78 Year
  Sex: Female

DRUGS (3)
  1. LYRICA [Suspect]
     Indication: ILL-DEFINED DISORDER
  2. INFLUENZA VACCINE (INFLUENZA VACCINE) [Suspect]
     Indication: ILL-DEFINED DISORDER
     Dates: start: 20050101
  3. VACCINES (VACCINES) [Suspect]
     Indication: ILL-DEFINED DISORDER
     Dates: start: 20050101

REACTIONS (1)
  - CONFUSIONAL STATE [None]
